FAERS Safety Report 10362601 (Version 1)
Quarter: 2014Q3

REPORT INFORMATION
  Report Type: Spontaneous
  Country: US (occurrence: US)
  Receive Date: 20140805
  Receipt Date: 20140805
  Transmission Date: 20150326
  Serious: No
  Sender: FDA-Public Use
  Company Number: US-PFIZER INC-2014216427

PATIENT
  Age: 82 Year
  Sex: Male
  Weight: 92.06 kg

DRUGS (15)
  1. VORICONAZOLE. [Suspect]
     Active Substance: VORICONAZOLE
     Dosage: 200 MG, 2X/DAY
     Route: 048
     Dates: start: 20140625, end: 20140716
  2. IPRATROPIUM [Concomitant]
     Active Substance: IPRATROPIUM
     Dosage: UNK
  3. LORATADINE. [Concomitant]
     Active Substance: LORATADINE
     Dosage: UNK
  4. KLOR-CON [Concomitant]
     Active Substance: POTASSIUM CHLORIDE
     Dosage: UNK
  5. BUDESONIDE. [Concomitant]
     Active Substance: BUDESONIDE
     Dosage: 0.5 MG, 2X/DAY
  6. DOXAZOSIN [Concomitant]
     Active Substance: DOXAZOSIN\DOXAZOSIN MESYLATE
     Dosage: 2 MG, UNK
     Route: 048
  7. METOPROLOL [Concomitant]
     Active Substance: METOPROLOL
     Dosage: 25 MG, UNK
  8. LIPITOR [Concomitant]
     Active Substance: ATORVASTATIN CALCIUM
     Indication: BLOOD CHOLESTEROL
     Dosage: 20 MG, UNK
  9. METAXALONE. [Concomitant]
     Active Substance: METAXALONE
     Dosage: 5 MG, UNK
  10. IBUPROFEN. [Concomitant]
     Active Substance: IBUPROFEN
     Dosage: UNK
  11. VORICONAZOLE. [Suspect]
     Active Substance: VORICONAZOLE
     Indication: BRONCHOPULMONARY ASPERGILLOSIS
     Dosage: 200 MG, 2X/DAY
     Route: 048
     Dates: start: 20131221, end: 20140101
  12. FINASTERIDE. [Concomitant]
     Active Substance: FINASTERIDE
     Dosage: 5 MG, UNK
     Route: 048
  13. FLUTICASONE [Concomitant]
     Active Substance: FLUTICASONE\FLUTICASONE PROPIONATE
     Dosage: 5 UG, UNK
     Route: 045
  14. PANTOPRAZOLE [Concomitant]
     Active Substance: PANTOPRAZOLE SODIUM
     Dosage: 20 MG, 1X/DAY
  15. FUROSEMIDE. [Concomitant]
     Active Substance: FUROSEMIDE
     Dosage: 40 MG, UNK

REACTIONS (4)
  - Sunburn [Unknown]
  - Body height decreased [Unknown]
  - Photosensitivity reaction [Unknown]
  - Rash generalised [Unknown]

NARRATIVE: CASE EVENT DATE: 2014
